FAERS Safety Report 17533436 (Version 1)
Quarter: 2020Q1

REPORT INFORMATION
  Report Type: Spontaneous
  Country: US (occurrence: US)
  Receive Date: 20200304
  Receipt Date: 20200304
  Transmission Date: 20200409
  Serious: Yes (Death)
  Sender: FDA-Public Use
  Company Number: None

PATIENT
  Age: 52 Year
  Sex: Male

DRUGS (4)
  1. JEVTANA [Suspect]
     Active Substance: CABAZITAXEL
     Indication: PROSTATE CANCER
     Route: 042
     Dates: start: 20200205, end: 20200303
  2. JEVTANA [Suspect]
     Active Substance: CABAZITAXEL
     Indication: METASTASES TO BONE
     Route: 042
     Dates: start: 20200205, end: 20200303
  3. RANITIDINE HCL SDV 50MG/2ML ZYDUS PHARMACEUTICALS [Suspect]
     Active Substance: RANITIDINE HYDROCHLORIDE
     Indication: PROSTATE CANCER
     Dosage: ?          OTHER STRENGTH:50MG/2ML;OTHER FREQUENCY:EVERY 21 DAYS;?
     Route: 042
     Dates: start: 20200205, end: 20200303
  4. RANITIDINE HCL SDV 50MG/2ML ZYDUS PHARMACEUTICALS [Suspect]
     Active Substance: RANITIDINE HYDROCHLORIDE
     Indication: METASTASES TO BONE
     Dosage: ?          OTHER STRENGTH:50MG/2ML;OTHER FREQUENCY:EVERY 21 DAYS;?
     Route: 042
     Dates: start: 20200205, end: 20200303

REACTIONS (1)
  - Death [None]

NARRATIVE: CASE EVENT DATE: 20200303
